FAERS Safety Report 8813076 (Version 7)
Quarter: 2013Q3

REPORT INFORMATION
  Report Type: Spontaneous
  Country: US (occurrence: US)
  Receive Date: 20120927
  Receipt Date: 20130711
  Transmission Date: 20140515
  Serious: Yes (Hospitalization, Other)
  Sender: FDA-Public Use
  Company Number: US-009507513-1209USA010329

PATIENT
  Sex: Female
  Weight: 66.67 kg

DRUGS (6)
  1. FOSAMAX [Suspect]
     Indication: OSTEOPOROSIS
     Dosage: 70 MG, QW
     Route: 048
     Dates: end: 200911
  2. ALENDRONATE SODIUM [Suspect]
     Indication: OSTEOPOROSIS
     Dosage: 70 MG, QW
     Route: 048
     Dates: end: 201009
  3. OS-CAL (CALCIUM (UNSPECIFIED) (+) VITAMIN D (UNSPECIFIED)) [Concomitant]
     Dosage: 200 UNITS/500 MG
     Route: 048
     Dates: start: 1993
  4. VITAMINS (UNSPECIFIED) [Concomitant]
     Dosage: UNK UNK, QD
     Route: 048
     Dates: start: 1993
  5. OSTEO-BI-FLEX [Concomitant]
     Dosage: UNK, BID
     Route: 048
     Dates: start: 1993
  6. BIOTIN [Concomitant]
     Dosage: 500, UNK, QD
     Route: 048
     Dates: start: 1993

REACTIONS (26)
  - Femur fracture [Unknown]
  - Intramedullary rod insertion [Unknown]
  - Deafness [Unknown]
  - Hypertension [Unknown]
  - Hypercholesterolaemia [Unknown]
  - Glaucoma [Not Recovered/Not Resolved]
  - Spinal osteoarthritis [Unknown]
  - Bone deformity [Unknown]
  - Osteochondroma [Unknown]
  - Osteoarthritis [Unknown]
  - Osteoarthritis [Unknown]
  - Granuloma [Unknown]
  - Gallbladder operation [Unknown]
  - Varicose vein [Unknown]
  - Osteoarthritis [Not Recovered/Not Resolved]
  - Macular degeneration [Unknown]
  - Hysterectomy [Unknown]
  - Electrocardiogram ST-T change [Unknown]
  - Open angle glaucoma [Unknown]
  - Osteopenia [Unknown]
  - Arthritis [Unknown]
  - Postoperative heterotopic calcification [Unknown]
  - Excoriation [Unknown]
  - Arthralgia [Unknown]
  - Back pain [Unknown]
  - Nausea [Unknown]
